APPROVED DRUG PRODUCT: TAPAZOLE
Active Ingredient: METHIMAZOLE
Strength: 10MG **Federal Register determination that product was not discontinued or withdrawn for safety or effectiveness reasons**
Dosage Form/Route: TABLET;ORAL
Application: N007517 | Product #004
Applicant: KING PHARMACEUTICALS INC
Approved: Approved Prior to Jan 1, 1982 | RLD: Yes | RS: No | Type: DISCN